FAERS Safety Report 21055624 (Version 3)
Quarter: 2022Q3

REPORT INFORMATION
  Report Type: Report from Study
  Country: None (occurrence: CN)
  Receive Date: 20220708
  Receipt Date: 20220920
  Transmission Date: 20221027
  Serious: Yes (Hospitalization)
  Sender: FDA-Public Use
  Company Number: CN-Jiangsu Hengrui Medicine Co., Ltd.-2130637

PATIENT
  Age: 59 Year
  Sex: Male
  Weight: 56 kg

DRUGS (3)
  1. OXALIPLATIN [Suspect]
     Active Substance: OXALIPLATIN
     Indication: Gastric cancer
     Route: 041
     Dates: start: 20220608, end: 20220608
  2. RETLIRAFUSP ALFA [Suspect]
     Active Substance: RETLIRAFUSP ALFA
     Route: 041
     Dates: start: 20220608, end: 20220608
  3. GIMERACIL\OTERACIL\TEGAFUR [Suspect]
     Active Substance: GIMERACIL\OTERACIL\TEGAFUR
     Route: 048
     Dates: start: 20220608, end: 20220622

REACTIONS (4)
  - Rash [Recovered/Resolved]
  - Diarrhoea [Recovered/Resolved]
  - Stomatitis [Recovered/Resolved]
  - Vulvar erosion [Recovered/Resolved]

NARRATIVE: CASE EVENT DATE: 20220628
